FAERS Safety Report 18664634 (Version 1)
Quarter: 2020Q4

REPORT INFORMATION
  Report Type: Spontaneous
  Country: US (occurrence: US)
  Receive Date: 20201225
  Receipt Date: 20201225
  Transmission Date: 20210114
  Serious: Yes (Other)
  Sender: FDA-Public Use
  Company Number: US-ASTRAZENECA-2020SF70674

PATIENT
  Age: 58 Year
  Sex: Male
  Weight: 108.9 kg

DRUGS (11)
  1. HUMALOG [Concomitant]
     Active Substance: INSULIN LISPRO
     Indication: DIABETES MELLITUS
     Dosage: 5 UNITS THREE TIMES EACH DAY
     Route: 058
  2. TOUJEO INSULIN [Concomitant]
     Indication: DIABETES MELLITUS
     Dosage: 10 UNITS EACH NIGHT
     Route: 058
     Dates: end: 202006
  3. XIGDUO XR [Suspect]
     Active Substance: DAPAGLIFLOZIN PROPANEDIOL\METFORMIN HYDROCHLORIDE
     Indication: DIABETES MELLITUS
     Dosage: 5/1000 MG, TWO TIMES A DAY
     Route: 048
     Dates: start: 201910
  4. XARELTO [Concomitant]
     Active Substance: RIVAROXABAN
     Indication: CARDIAC DISORDER
     Route: 048
     Dates: start: 2018
  5. BYDUREON BCISE [Suspect]
     Active Substance: EXENATIDE
     Indication: DIABETES MELLITUS
     Route: 058
     Dates: start: 201910
  6. OMEPRAZOLE. [Suspect]
     Active Substance: OMEPRAZOLE
     Indication: DYSPEPSIA
     Dosage: GENERIC-40 MG TWO TIMES A DAY
     Route: 048
     Dates: start: 1995
  7. ATORVASTATIN [Concomitant]
     Active Substance: ATORVASTATIN
     Indication: BLOOD CHOLESTEROL INCREASED
     Route: 048
     Dates: start: 202005
  8. DULOXITINE [Concomitant]
     Active Substance: DULOXETINE
     Indication: DEPRESSION
     Route: 048
     Dates: start: 2018
  9. FINASTERIDE. [Concomitant]
     Active Substance: FINASTERIDE
     Indication: URINARY TRACT DISORDER
     Route: 048
     Dates: start: 2015
  10. REPAGLINIDE. [Concomitant]
     Active Substance: REPAGLINIDE
     Indication: BLOOD GLUCOSE INCREASED
     Dosage: 0.5 MG.AS NEEDED BEFORE MEALS HIGH IN CALORIES
     Route: 048
  11. VITAMIN D [Concomitant]
     Active Substance: VITAMIN D NOS
     Dosage: 2000USP UNITS EVERY DAY

REACTIONS (11)
  - Glycosylated haemoglobin increased [Recovered/Resolved]
  - Dysuria [Unknown]
  - Blood glucose fluctuation [Not Recovered/Not Resolved]
  - Cardiac disorder [Unknown]
  - Blood cholesterol increased [Unknown]
  - Product dose omission issue [Not Recovered/Not Resolved]
  - Incorrect dose administered [Not Recovered/Not Resolved]
  - Cardiac failure [Unknown]
  - Wrong technique in device usage process [Recovered/Resolved]
  - Device leakage [Unknown]
  - Blood glucose increased [Not Recovered/Not Resolved]

NARRATIVE: CASE EVENT DATE: 2011
